FAERS Safety Report 10611149 (Version 2)
Quarter: 2015Q1

REPORT INFORMATION
  Report Type: Report from Study
  Country: US (occurrence: US)
  Receive Date: 20141126
  Receipt Date: 20150126
  Transmission Date: 20150720
  Serious: Yes (Death, Other)
  Sender: FDA-Public Use
  Company Number: US-TEVA-524500USA

PATIENT
  Sex: Female

DRUGS (1)
  1. PROAIR HFA [Suspect]
     Active Substance: ALBUTEROL SULFATE
     Route: 065
     Dates: start: 20131219

REACTIONS (5)
  - Pneumococcal sepsis [Fatal]
  - Coronary artery bypass [Fatal]
  - Cardiopulmonary failure [Fatal]
  - Chemotherapy [Fatal]
  - Mitral valve repair [Fatal]
